FAERS Safety Report 12270734 (Version 1)
Quarter: 2016Q2

REPORT INFORMATION
  Report Type: Spontaneous
  Country: US (occurrence: None)
  Receive Date: 20160414
  Receipt Date: 20160414
  Transmission Date: 20160815
  Serious: Yes (Other)
  Sender: FDA-Public Use
  Company Number: None

PATIENT
  Age: 69 Year
  Sex: Female

DRUGS (1)
  1. SENSIPAR [Suspect]
     Active Substance: CINACALCET HYDROCHLORIDE
     Indication: HYPERCALCAEMIA
     Route: 048

REACTIONS (4)
  - Hypersensitivity [None]
  - Throat tightness [None]
  - Dyspepsia [None]
  - Sensation of foreign body [None]

NARRATIVE: CASE EVENT DATE: 20160408
